FAERS Safety Report 7544787-8 (Version None)
Quarter: 2011Q2

REPORT INFORMATION
  Report Type: 
  Country: None (occurrence: None)
  Receive Date: 20110614
  Receipt Date: 20091122
  Transmission Date: 20111010
  Serious: Yes (Death, Hospitalization, Other)
  Sender: FDA-Public Use
  Company Number: US-BAYER-200940179NA

PATIENT
  Age: 8 Month
  Sex: Male
  Weight: 5.6 kg

DRUGS (49)
  1. HEPARIN [Concomitant]
     Dosage: 600 U, UNK
     Route: 042
     Dates: start: 20070403
  2. VECURONIUM BROMIDE [Concomitant]
     Dosage: PREOPERATIVE
     Route: 042
  3. EPINEPHRINE [Concomitant]
     Dosage: UNK
     Route: 042
     Dates: start: 20070403
  4. TRASYLOL [Suspect]
     Indication: VENTRICULAR SEPTAL DEFECT REPAIR
     Dosage: 12 ML (LOADING DOSE)
     Route: 042
     Dates: start: 20070403, end: 20070403
  5. FENTANYL [Concomitant]
     Dosage: PREOPERATIVE
     Route: 042
  6. FORTAZ [Concomitant]
     Dosage: UNK
     Route: 042
     Dates: start: 20070403
  7. NOREPINEPHRINE BITARTRATE [Concomitant]
  8. VECURONIUM BROMIDE [Concomitant]
     Dosage: TITRATED
     Route: 042
  9. DECADRON [Concomitant]
     Dosage: UNK
     Route: 042
     Dates: start: 20061001
  10. BUMEX [Concomitant]
     Dosage: 0.5 MG (PREOPERATIVE)
     Route: 042
  11. DIFLUCAN [Concomitant]
  12. CLORPACTIN [Concomitant]
  13. CEFAZOLIN [Concomitant]
  14. MEROPENEM [Concomitant]
  15. ALBUMIN (HUMAN) [Concomitant]
  16. FORTAZ [Concomitant]
  17. TRASYLOL [Suspect]
     Indication: TETRALOGY OF FALLOT REPAIR
     Dosage: 1 ML, ONCE, INTIAL TEST DOSE
     Route: 042
     Dates: start: 20070403, end: 20070403
  18. TRASYLOL [Suspect]
     Indication: RIGHT VENTRICULAR OUTLET TRACT PATCH
     Dosage: 3 ML/HR (INFUSION)
     Route: 042
     Dates: start: 20070403, end: 20070403
  19. ATIVAN [Concomitant]
     Dosage: UNK
  20. DIURIL [Concomitant]
     Route: 042
  21. PULMICORT [Concomitant]
  22. FENTANYL [Concomitant]
     Dosage: TITRATED
     Route: 042
  23. DIFLUCAN [Concomitant]
     Dosage: UNK
     Route: 042
     Dates: start: 20070403
  24. RANITIDINE [Concomitant]
  25. NORCURON [Concomitant]
  26. DOPAMINE HCL [Concomitant]
     Dosage: UNK
     Route: 042
     Dates: start: 20070403
  27. PRIMACOR [Concomitant]
     Dosage: UNK
     Route: 042
     Dates: start: 20061001
  28. RED BLOOD CELLS [Concomitant]
     Dosage: 1 U, UNK
     Route: 042
     Dates: start: 20070403, end: 20070403
  29. CEFTAZIDIME [Concomitant]
     Route: 042
  30. OXACILLIN SODIUM [Concomitant]
  31. MIDAZOLAM HCL [Concomitant]
  32. MIDAZOLAM HCL [Concomitant]
     Dosage: PREOPERATIVE
     Route: 042
  33. POTASSIUM CHLORIDE [Concomitant]
     Dosage: VARIED DOSES
     Route: 042
  34. CHLORAL HYDRATE [Concomitant]
     Dosage: UNK, PERIRECTAL
  35. TOBRAMYCIN [Concomitant]
  36. ZANTAC [Concomitant]
     Dosage: UNK
  37. XOPENEX [Concomitant]
  38. VANCOMYCIN [Concomitant]
     Dosage: UNK
     Route: 042
     Dates: start: 20070403
  39. LEVALBUTEROL HCL [Concomitant]
  40. SEVOFLURANE [Concomitant]
  41. DOPAMINE HCL [Concomitant]
  42. PROTAMINE SULFATE [Concomitant]
     Dosage: 50 MG, UNK
     Route: 042
     Dates: start: 20070403, end: 20070403
  43. MILRINONE [Concomitant]
     Dosage: UNK
     Route: 042
     Dates: start: 20070403
  44. OPTIRAY 300 [Concomitant]
     Indication: CATHETERISATION CARDIAC
     Dosage: 30 ML, UNK
     Route: 042
     Dates: start: 20070319, end: 20070319
  45. BUMEX [Concomitant]
     Dosage: VARIED DOSES
     Route: 042
  46. PULMOZYME [Concomitant]
  47. VANCOMYCIN [Concomitant]
     Route: 042
  48. NYSTATIN [Concomitant]
  49. LASIX [Concomitant]
     Dosage: VARIED DOSES
     Route: 042

REACTIONS (14)
  - RENAL FAILURE [None]
  - RENAL IMPAIRMENT [None]
  - EMOTIONAL DISTRESS [None]
  - FEAR [None]
  - PAIN [None]
  - MULTI-ORGAN FAILURE [None]
  - CARDIAC FAILURE [None]
  - ANXIETY [None]
  - UNEVALUABLE EVENT [None]
  - ANHEDONIA [None]
  - DEATH [None]
  - RENAL INJURY [None]
  - STRESS [None]
  - INJURY [None]
